FAERS Safety Report 14040160 (Version 12)
Quarter: 2018Q3

REPORT INFORMATION
  Report Type: Report from Study
  Country: US (occurrence: US)
  Receive Date: 20171004
  Receipt Date: 20180830
  Transmission Date: 20181010
  Serious: Yes (Death, Hospitalization)
  Sender: FDA-Public Use
  Company Number: US-ACTELION-A-NJ2017-160136

PATIENT
  Age: 66 Year
  Sex: Male
  Weight: 61.22 kg

DRUGS (26)
  1. VELETRI [Suspect]
     Active Substance: EPOPROSTENOL
     Dosage: 15 NG/KG, PER MIN
     Route: 042
  2. ASPIRIN. [Concomitant]
     Active Substance: ASPIRIN
     Dosage: UNK
     Dates: start: 20170911
  3. LEVOTHYROXINE. [Concomitant]
     Active Substance: LEVOTHYROXINE
     Dosage: UNK
     Dates: start: 20170911
  4. VELETRI [Suspect]
     Active Substance: EPOPROSTENOL
     Indication: PULMONARY HYPERTENSION
     Dosage: 8 NG/KG, PER MIN
     Route: 042
     Dates: start: 20170911
  5. BROVANA [Concomitant]
     Active Substance: ARFORMOTEROL TARTRATE
  6. SPIRIVA [Concomitant]
     Active Substance: TIOTROPIUM BROMIDE MONOHYDRATE
     Dosage: UNK
     Dates: start: 20170911
  7. VENOFER [Concomitant]
     Active Substance: IRON SUCROSE
     Dosage: UNK
     Dates: start: 20180307
  8. OMEPRAZOLE. [Concomitant]
     Active Substance: OMEPRAZOLE
     Dosage: UNK
     Dates: start: 20170911
  9. PREDNISONE. [Concomitant]
     Active Substance: PREDNISONE
     Dosage: UNK
     Dates: start: 20180307
  10. AMLODIPINE [Concomitant]
     Active Substance: AMLODIPINE BESYLATE
     Dosage: UNK
     Dates: start: 20170911
  11. BYSTOLIC [Concomitant]
     Active Substance: NEBIVOLOL HYDROCHLORIDE
     Dosage: UNK
     Dates: start: 20170911
  12. CILOSTAZOL. [Concomitant]
     Active Substance: CILOSTAZOL
     Dosage: UNK
     Dates: start: 20170911
  13. ZOSYN [Concomitant]
     Active Substance: PIPERACILLIN SODIUM\TAZOBACTAM SODIUM
     Dosage: UNK
     Dates: start: 20180307
  14. ADCIRCA [Concomitant]
     Active Substance: TADALAFIL
     Dosage: UNK
     Dates: start: 20170911
  15. VITAMIN B12 [Concomitant]
     Active Substance: CYANOCOBALAMIN
     Dosage: UNK
     Dates: start: 20170911
  16. POTASSIUM CHLORIDE. [Concomitant]
     Active Substance: POTASSIUM CHLORIDE
     Dosage: UNK
     Dates: start: 20170911
  17. STIOLTO RESPIMAT [Concomitant]
     Active Substance: OLODATEROL HYDROCHLORIDE\TIOTROPIUM BROMIDE MONOHYDRATE
     Dosage: UNK
     Dates: start: 20170911
  18. TORSEMIDE. [Concomitant]
     Active Substance: TORSEMIDE
     Dosage: UNK
     Dates: start: 20170911
  19. XIFAXAN [Concomitant]
     Active Substance: RIFAXIMIN
     Dosage: UNK
     Dates: start: 20170911
  20. OPSUMIT [Suspect]
     Active Substance: MACITENTAN
     Indication: PULMONARY HYPERTENSION
     Dosage: 10 MG, UNK
     Route: 048
     Dates: start: 20170816, end: 20180330
  21. VENTOLIN [Concomitant]
     Active Substance: ALBUTEROL SULFATE
     Dosage: UNK
     Dates: start: 20170911
  22. SOLU?MEDROL [Concomitant]
     Active Substance: METHYLPREDNISOLONE SODIUM SUCCINATE
     Dosage: UNK
     Dates: start: 20180307
  23. VANCOMYCIN [Concomitant]
     Active Substance: VANCOMYCIN
     Dosage: UNK
     Dates: start: 20180307
  24. BUMETANIDE. [Concomitant]
     Active Substance: BUMETANIDE
  25. SIMVASTATIN. [Concomitant]
     Active Substance: SIMVASTATIN
     Dosage: UNK
     Dates: start: 20170911
  26. SPIRONOLACTONE. [Concomitant]
     Active Substance: SPIRONOLACTONE
     Dosage: UNK
     Dates: start: 20170911

REACTIONS (38)
  - Subarachnoid haemorrhage [Fatal]
  - Hypoxia [Recovered/Resolved with Sequelae]
  - Sputum purulent [Recovered/Resolved]
  - Pain in jaw [Unknown]
  - Abdominal pain upper [Unknown]
  - Headache [Unknown]
  - Subdural haematoma [Fatal]
  - Gastrointestinal infection [Not Recovered/Not Resolved]
  - Cough [Recovered/Resolved]
  - Cardiac arrest [Fatal]
  - Brain death [Unknown]
  - Nausea [Unknown]
  - Viral infection [Unknown]
  - Dyspnoea [Recovered/Resolved]
  - Lung infiltration [Recovered/Resolved]
  - Lymphadenopathy [Unknown]
  - Feeling abnormal [Unknown]
  - Intracranial aneurysm [Fatal]
  - Chest pain [Unknown]
  - Unresponsive to stimuli [Unknown]
  - Metastasis [Unknown]
  - Bronchitis [Unknown]
  - Dyspnoea exertional [Unknown]
  - Bradycardia [Unknown]
  - Device leakage [Unknown]
  - Pulmonary arterial hypertension [Recovered/Resolved with Sequelae]
  - Brain herniation [Unknown]
  - Pneumonia [Recovered/Resolved]
  - Testicular pain [Unknown]
  - Unevaluable event [Unknown]
  - Cerebrovascular accident [Fatal]
  - Musculoskeletal pain [Unknown]
  - Pneumothorax spontaneous [Unknown]
  - Groin pain [Unknown]
  - Vomiting [Unknown]
  - Condition aggravated [Recovered/Resolved with Sequelae]
  - Oxygen consumption increased [Recovered/Resolved]
  - Anaemia [Unknown]

NARRATIVE: CASE EVENT DATE: 201709
